FAERS Safety Report 20314599 (Version 3)
Quarter: 2022Q1

REPORT INFORMATION
  Report Type: Spontaneous
  Country: NL (occurrence: NL)
  Receive Date: 20220109
  Receipt Date: 20220127
  Transmission Date: 20220423
  Serious: No
  Sender: FDA-Public Use
  Company Number: NL-Shilpa Medicare Limited-SML-NL-2021-01548

PATIENT
  Age: 86 Year
  Sex: Female

DRUGS (11)
  1. SIMVASTATIN [Suspect]
     Active Substance: SIMVASTATIN
     Dosage: 40 MG (LDDL, FOR TEN YEARS)
  2. ERLOTINIB [Suspect]
     Active Substance: ERLOTINIB
     Indication: Non-small cell lung cancer
     Dosage: 150 MG/DAY, 1 HOUR BEFORE BREAKFAST ON AN EMPTY STOMACH
     Route: 048
  3. ERLOTINIB [Suspect]
     Active Substance: ERLOTINIB
     Dosage: 100 MG/DAY
     Route: 048
  4. ERLOTINIB [Suspect]
     Active Substance: ERLOTINIB
     Dosage: 2 HOURS AFTER DINNER
     Route: 048
  5. MINOCYCLINE [Concomitant]
     Active Substance: MINOCYCLINE HYDROCHLORIDE
     Indication: Skin toxicity
     Dosage: 100 MG (LDDL, FOR EIGHT MONTHS)
     Route: 048
  6. METOPROLOL [Concomitant]
     Active Substance: METOPROLOL
     Dosage: 50 MG (LDDL, FOR TEN YEARS)
  7. ASPIRIN [Concomitant]
     Active Substance: ASPIRIN
     Dosage: 80 MG (LDDL, FOR TEN YEARS)
  8. OMEPRAZOLE [Concomitant]
     Active Substance: OMEPRAZOLE
     Dosage: INITIALLY 40 MG
  9. OMEPRAZOLE [Concomitant]
     Active Substance: OMEPRAZOLE
     Dosage: THEN 20 MG (LDDL, FOR 7 YEARS)
  10. DOXYCYCLINE [Concomitant]
     Active Substance: DOXYCYCLINE
     Dosage: 100 MG, LDDL
     Route: 048
  11. VITAMIN D NOS [Concomitant]
     Active Substance: VITAMIN D NOS
     Dosage: 800 IU, LDDL

REACTIONS (1)
  - Myalgia [Recovered/Resolved]
